FAERS Safety Report 6422802-2 (Version None)
Quarter: 2009Q4

REPORT INFORMATION
  Report Type: 
  Country: None (occurrence: None)
  Receive Date: 20091028
  Receipt Date: 20091015
  Transmission Date: 20100525
  Serious: Yes (Hospitalization)
  Sender: FDA-Public Use
  Company Number: FABR-1001036

PATIENT
  Age: 53 Year
  Sex: Female
  Weight: 70 kg

DRUGS (1)
  1. FABRAZYME [Suspect]
     Indication: FABRY'S DISEASE
     Dosage: 70 MG, QOW, INTRAVENOUS
     Route: 042
     Dates: start: 20050208

REACTIONS (4)
  - BLOOD IRON DECREASED [None]
  - CONVULSION [None]
  - DYSPEPSIA [None]
  - SYNCOPE [None]
